FAERS Safety Report 4467470-4 (Version None)
Quarter: 2004Q4

REPORT INFORMATION
  Report Type: 
  Country: None (occurrence: None)
  Receive Date: 20041006
  Receipt Date: 20041003
  Transmission Date: 20050328
  Serious: Yes (Hospitalization)
  Sender: FDA-Public Use
  Company Number: DE-MERCK-0410DEU00041

PATIENT
  Age: 66 Year
  Sex: Female

DRUGS (3)
  1. METHOTREXATE [Concomitant]
     Route: 065
     Dates: end: 20040713
  2. VIOXX [Suspect]
     Indication: RHEUMATOID ARTHRITIS
     Route: 048
     Dates: start: 20000201
  3. VIOXX [Suspect]
     Route: 048
     Dates: end: 20040713

REACTIONS (2)
  - CARDIAC FAILURE CONGESTIVE [None]
  - VISUAL DISTURBANCE [None]
